FAERS Safety Report 8126284-4 (Version None)
Quarter: 2012Q1

REPORT INFORMATION
  Report Type: 
  Country: None (occurrence: None)
  Receive Date: 20120209
  Receipt Date: 20120206
  Transmission Date: 20120608
  Serious: No
  Sender: FDA-Public Use
  Company Number: US-BAYER-2012-013147

PATIENT
  Age: 16 Year
  Sex: Female

DRUGS (2)
  1. ALEVE (CAPLET) [Suspect]
     Indication: MUSCLE SPASMS
  2. IBUPROFEN [Concomitant]

REACTIONS (1)
  - MUSCLE SPASMS [None]
